FAERS Safety Report 8951331 (Version 1)
Quarter: 2012Q4

REPORT INFORMATION
  Report Type: 
  Country: GB (occurrence: GB)
  Receive Date: 20121207
  Receipt Date: 20121207
  Transmission Date: 20130627
  Serious: Yes (Other)
  Sender: FDA-Public Use
  Company Number: GB-ASTELLAS-2012US011898

PATIENT
  Age: 83 Year
  Sex: Male

DRUGS (2)
  1. TARCEVA [Suspect]
     Indication: LUNG NEOPLASM MALIGNANT
     Dosage: 150 mg, UID/QD
     Route: 048
  2. TARCEVA [Suspect]
     Dosage: 100 mg, UID/QD
     Route: 065

REACTIONS (3)
  - Haemoptysis [Unknown]
  - Ocular hyperaemia [Unknown]
  - Dry skin [Unknown]
